FAERS Safety Report 9196682 (Version 1)
Quarter: 2013Q1

REPORT INFORMATION
  Report Type: Spontaneous
  Country: US (occurrence: None)
  Receive Date: 20120709
  Receipt Date: 20120709
  Transmission Date: 20140127
  Serious: Yes (Other)
  Sender: FDA-Public Use
  Company Number: PHEH2012US003318

PATIENT
  Age: 46 Year
  Sex: Male

DRUGS (1)
  1. GLEEVEC [Suspect]
     Indication: CHRONIC MYELOID LEUKAEMIA
     Dates: start: 20110728

REACTIONS (4)
  - Intestinal obstruction [None]
  - Migraine [None]
  - Nausea [None]
  - Bowel movement irregularity [None]
